FAERS Safety Report 10690788 (Version 2)
Quarter: 2015Q2

REPORT INFORMATION
  Report Type: Spontaneous
  Country: US (occurrence: US)
  Receive Date: 20150105
  Receipt Date: 20150430
  Transmission Date: 20150821
  Serious: Yes (Hospitalization)
  Sender: FDA-Public Use
  Company Number: US-PFIZER INC-2014361909

PATIENT
  Age: 84 Year
  Sex: Female
  Weight: 53 kg

DRUGS (7)
  1. ARMOUR THYROID [Suspect]
     Active Substance: THYROID, PORCINE\THYROID, UNSPECIFIED
     Indication: THYROID DISORDER
     Dosage: UNK
  2. LEVOTHYROXINE SODIUM. [Suspect]
     Active Substance: LEVOTHYROXINE SODIUM
     Indication: THYROID DISORDER
     Dosage: UNK
  3. BABY ASPIRIN [Concomitant]
     Active Substance: ASPIRIN
     Dosage: UNK, DAILY
  4. BETIMOL [Concomitant]
     Active Substance: TIMOLOL
     Dosage: UNK
  5. XALATAN [Concomitant]
     Active Substance: LATANOPROST
     Dosage: UNK
  6. LEVOTHYROXINE SODIUM. [Suspect]
     Active Substance: LEVOTHYROXINE SODIUM
     Dosage: UNK
     Dates: start: 2013
  7. ARMOUR THYROID [Suspect]
     Active Substance: THYROID, PORCINE\THYROID, UNSPECIFIED
     Dosage: 15 MG, 1X/DAY
     Dates: start: 201310, end: 2013

REACTIONS (8)
  - Throat irritation [Unknown]
  - Movement disorder [Unknown]
  - Feeling abnormal [Unknown]
  - Asthenia [Unknown]
  - Hypoaesthesia [Unknown]
  - Dizziness [Unknown]
  - Tongue pruritus [Unknown]
  - Paraesthesia [Unknown]

NARRATIVE: CASE EVENT DATE: 201310
